FAERS Safety Report 8209317-6 (Version None)
Quarter: 2012Q1

REPORT INFORMATION
  Report Type: 
  Country: None (occurrence: None)
  Receive Date: 20120314
  Receipt Date: 20120306
  Transmission Date: 20120608
  Serious: Yes (Hospitalization, Other)
  Sender: FDA-Public Use
  Company Number: US-BAYER-200942717NA

PATIENT
  Age: 43 Year
  Sex: Female
  Weight: 109 kg

DRUGS (16)
  1. SERTRALINE HYDROCHLORIDE [Concomitant]
  2. FERROUS SULFATE TAB [Concomitant]
  3. DROSPIRENONE AND ETHINYL ESTRADIOL [Suspect]
     Indication: PREMENSTRUAL SYNDROME
     Dosage: UNK
     Dates: start: 20090201, end: 20090501
  4. IBUPROFEN [Concomitant]
  5. SINGULAIR [Concomitant]
  6. OMEPRAZOLE [Concomitant]
  7. PREDNISONE TAB [Concomitant]
  8. TRAZODONE HCL [Concomitant]
  9. CLONAZEPAM [Concomitant]
  10. CETIRIZINE [Concomitant]
  11. AZITHROMYCIN [Concomitant]
  12. YAZ [Suspect]
     Indication: PREMENSTRUAL SYNDROME
     Dates: start: 20050101, end: 20090101
  13. YASMIN [Suspect]
     Indication: PREMENSTRUAL SYNDROME
     Dosage: UNK
     Dates: start: 20070101, end: 20080601
  14. DICLOFENAC SODIUM [Concomitant]
  15. ADVAIR DISKUS 100/50 [Concomitant]
  16. CYCLOBENZAPRINE HCL [Concomitant]

REACTIONS (5)
  - MYOCARDIAL INFARCTION [None]
  - MENTAL DISORDER [None]
  - DEEP VEIN THROMBOSIS [None]
  - PULMONARY EMBOLISM [None]
  - DEPRESSION [None]
